FAERS Safety Report 5754823-7 (Version None)
Quarter: 2008Q2

REPORT INFORMATION
  Report Type: 
  Country: None (occurrence: None)
  Receive Date: 20080527
  Receipt Date: 20080516
  Transmission Date: 20081010
  Serious: Yes (Hospitalization)
  Sender: FDA-Public Use
  Company Number: 2008SP009323

PATIENT
  Age: 35 Year
  Sex: Female
  Weight: 73 kg

DRUGS (18)
  1. PEG-INTRON [Suspect]
     Indication: HEPATITIS C
     Dosage: 100 MCG; QW; SC, 60 MCG; QW; SC, 80 MCG; QW; SC, 50 MCG; QW; SC, 40 MCG; QW; SC
     Route: 058
     Dates: start: 20050912, end: 20051002
  2. PEG-INTRON [Suspect]
     Indication: HEPATITIS C
     Dosage: 100 MCG; QW; SC, 60 MCG; QW; SC, 80 MCG; QW; SC, 50 MCG; QW; SC, 40 MCG; QW; SC
     Route: 058
     Dates: start: 20051003, end: 20051031
  3. PEG-INTRON [Suspect]
     Indication: HEPATITIS C
     Dosage: 100 MCG; QW; SC, 60 MCG; QW; SC, 80 MCG; QW; SC, 50 MCG; QW; SC, 40 MCG; QW; SC
     Route: 058
     Dates: start: 20051107, end: 20060420
  4. PEG-INTRON [Suspect]
     Indication: HEPATITIS C
     Dosage: 100 MCG; QW; SC, 60 MCG; QW; SC, 80 MCG; QW; SC, 50 MCG; QW; SC, 40 MCG; QW; SC
     Route: 058
     Dates: start: 20060522, end: 20061023
  5. PEG-INTRON [Suspect]
     Indication: HEPATITIS C
     Dosage: 100 MCG; QW; SC, 60 MCG; QW; SC, 80 MCG; QW; SC, 50 MCG; QW; SC, 40 MCG; QW; SC
     Route: 058
     Dates: start: 20061023, end: 20070305
  6. REBETOL [Suspect]
     Indication: HEPATITIS C
     Dosage: 800 MG; QD; PO, 600 MG; QD; PO, 800 MG; QD; PO, 600 MG; QD; PO, 400 MG; QD; PO
     Route: 048
     Dates: start: 20050912, end: 20051016
  7. REBETOL [Suspect]
     Indication: HEPATITIS C
     Dosage: 800 MG; QD; PO, 600 MG; QD; PO, 800 MG; QD; PO, 600 MG; QD; PO, 400 MG; QD; PO
     Route: 048
     Dates: start: 20051017, end: 20060227
  8. REBETOL [Suspect]
     Indication: HEPATITIS C
     Dosage: 800 MG; QD; PO, 600 MG; QD; PO, 800 MG; QD; PO, 600 MG; QD; PO, 400 MG; QD; PO
     Route: 048
     Dates: start: 20060227, end: 20060326
  9. REBETOL [Suspect]
     Indication: HEPATITIS C
     Dosage: 800 MG; QD; PO, 600 MG; QD; PO, 800 MG; QD; PO, 600 MG; QD; PO, 400 MG; QD; PO
     Route: 048
     Dates: start: 20060327, end: 20060420
  10. REBETOL [Suspect]
     Indication: HEPATITIS C
     Dosage: 800 MG; QD; PO, 600 MG; QD; PO, 800 MG; QD; PO, 600 MG; QD; PO, 400 MG; QD; PO
     Route: 048
     Dates: start: 20060522, end: 20070305
  11. URSO 250 [Concomitant]
  12. SHAKUYAKUKANZOUTOU [Concomitant]
  13. HUMULIN R [Concomitant]
  14. NOVOLIN R [Concomitant]
  15. NOVOLIN N [Concomitant]
  16. LANTUS [Concomitant]
  17. NOVORAPID [Concomitant]
  18. HUMALOG [Concomitant]

REACTIONS (6)
  - DIABETES MELLITUS [None]
  - DIABETIC KETOACIDOSIS [None]
  - HAEMOGLOBIN DECREASED [None]
  - HIV TEST POSITIVE [None]
  - IRRITABILITY [None]
  - PLATELET COUNT DECREASED [None]
